FAERS Safety Report 8504360-1 (Version None)
Quarter: 2012Q3

REPORT INFORMATION
  Report Type: 
  Country: None (occurrence: None)
  Receive Date: 20120711
  Receipt Date: 20120629
  Transmission Date: 20120928
  Serious: Yes (Other)
  Sender: FDA-Public Use
  Company Number: UA-UCBSA-060981

PATIENT
  Age: 17 Year
  Sex: Male

DRUGS (7)
  1. KEPPRA [Suspect]
     Dosage: 1.5 G DAILY
  2. KEPPRA [Suspect]
     Indication: MYOCLONUS
     Dosage: 2 G / DAY
  3. SIBAZON [Concomitant]
  4. CARBAMAZEPINE [Concomitant]
  5. GIDAZEPAM [Concomitant]
  6. PROTEFLAZIDUM [Concomitant]
     Dosage: UNKNOWN
  7. CLONAZEPAM [Concomitant]

REACTIONS (1)
  - PAGET-SCHROETTER SYNDROME [None]
